FAERS Safety Report 4781345-2 (Version None)
Quarter: 2005Q3

REPORT INFORMATION
  Report Type: 
  Country: None (occurrence: None)
  Receive Date: 20050928
  Receipt Date: 20050923
  Transmission Date: 20060218
  Serious: Yes (Hospitalization)
  Sender: FDA-Public Use
  Company Number: 2005CG01574

PATIENT
  Age: 66 Year
  Sex: Male
  Weight: 55 kg

DRUGS (7)
  1. OMEPRAZOLE [Suspect]
     Route: 048
     Dates: end: 20050813
  2. AUGMENTIN [Concomitant]
     Indication: ESCHERICHIA SEPSIS
     Route: 042
     Dates: start: 20050725, end: 20050820
  3. CIFLOX [Concomitant]
     Indication: ESCHERICHIA SEPSIS
     Route: 042
     Dates: start: 20050725, end: 20050820
  4. XANAX [Concomitant]
  5. IMOVANE [Concomitant]
  6. SECTRAL [Concomitant]
  7. GAVISCON [Concomitant]

REACTIONS (2)
  - HYPOCHLORAEMIA [None]
  - HYPONATRAEMIA [None]
